FAERS Safety Report 20950048 (Version 2)
Quarter: 2024Q2

REPORT INFORMATION
  Report Type: Other
  Country: US (occurrence: None)
  Receive Date: 20220613
  Receipt Date: 20240522
  Transmission Date: 20240716
  Serious: Yes (Other)
  Sender: FDA-Public Use
  Company Number: US-ROCHE-2846223

PATIENT
  Age: 72 Year
  Sex: Female
  Weight: 58.566 kg

DRUGS (14)
  1. ACTEMRA [Suspect]
     Active Substance: TOCILIZUMAB
     Indication: Sympathetic ophthalmia
     Dosage: 18/MAY/2021
     Route: 058
     Dates: start: 20210310
  2. ACTEMRA [Suspect]
     Active Substance: TOCILIZUMAB
     Indication: Sarcoidosis
  3. ACTEMRA [Suspect]
     Active Substance: TOCILIZUMAB
     Indication: Sympathetic ophthalmia
  4. CELLCEPT [Suspect]
     Active Substance: MYCOPHENOLATE MOFETIL
     Indication: Sarcoidosis
     Route: 065
  5. JANUMET XR [Concomitant]
     Active Substance: METFORMIN HYDROCHLORIDE\SITAGLIPTIN PHOSPHATE
     Route: 048
  6. LANTUS [Concomitant]
     Active Substance: INSULIN GLARGINE
     Route: 058
  7. TIMOLOL MALEATE [Concomitant]
     Active Substance: TIMOLOL MALEATE
     Route: 047
  8. PRED FORTE [Concomitant]
     Active Substance: PREDNISOLONE ACETATE
     Route: 047
  9. VENTOLIN [Concomitant]
     Active Substance: ALBUTEROL SULFATE
  10. LOSARTAN POTASSIUM [Concomitant]
     Active Substance: LOSARTAN POTASSIUM
     Route: 048
  11. HYDROCHLOROTHIAZIDE [Concomitant]
     Active Substance: HYDROCHLOROTHIAZIDE
     Route: 048
  12. ALBUTEROL [Concomitant]
     Active Substance: ALBUTEROL
     Dosage: 90MCG/ACT AEROSOL SOLN, 2 PUFFS INHALATION DAILY
  13. LATANOPROST [Concomitant]
     Active Substance: LATANOPROST
     Dosage: 0.005% SOLUTION, 1 DROP EACH EYE @ NIGHT OPHTHALMIC
  14. DORZOLAMIDE\TIMOLOL [Concomitant]
     Active Substance: DORZOLAMIDE\TIMOLOL
     Dosage: (22.3-6.8MG/ML SOLUTION, 1 DROP EACH EYE OPHTHALMIC TWIE DAY)

REACTIONS (18)
  - Arrhythmia [Unknown]
  - Bursitis [Unknown]
  - Joint swelling [Unknown]
  - Off label use [Unknown]
  - Memory impairment [Unknown]
  - Memory impairment [Unknown]
  - COVID-19 [Unknown]
  - Nodule [Unknown]
  - Lipoma [Unknown]
  - Nausea [Unknown]
  - Patellofemoral pain syndrome [Unknown]
  - Ataxia [Unknown]
  - Otitis media [Unknown]
  - Meniscus injury [Unknown]
  - Urinary tract infection [Unknown]
  - Muscle spasms [Unknown]
  - Hypertension [Unknown]
  - Back pain [Unknown]
